FAERS Safety Report 7642663-3 (Version None)
Quarter: 2011Q3

REPORT INFORMATION
  Report Type: 
  Country: None (occurrence: None)
  Receive Date: 20110728
  Receipt Date: 20110721
  Transmission Date: 20111222
  Serious: No
  Sender: FDA-Public Use
  Company Number: US-PFIZER INC-2011105702

PATIENT
  Age: 81 Year
  Sex: Female

DRUGS (5)
  1. TRAZODONE [Concomitant]
     Indication: SLEEP DISORDER
  2. NEURONTIN [Suspect]
     Indication: PAIN
     Dosage: 100 MG, 3X/DAY
     Route: 048
     Dates: start: 20100726, end: 20110501
  3. OXAPROZIN [Concomitant]
     Indication: INFLAMMATION
     Dosage: 600 MG, 2X/DAY
     Dates: start: 20110418
  4. TRAMADOL [Concomitant]
     Indication: PAIN
     Dosage: 50 MG, 2X/DAY
     Dates: start: 20110308
  5. TRAZODONE [Concomitant]
     Indication: DEPRESSION
     Dosage: 50 MG, HOURS OF SLEEP
     Dates: start: 20100830

REACTIONS (1)
  - AGEUSIA [None]
